FAERS Safety Report 14634853 (Version 1)
Quarter: 2018Q1

REPORT INFORMATION
  Report Type: Spontaneous
  Country: JP (occurrence: JP)
  Receive Date: 20180314
  Receipt Date: 20180314
  Transmission Date: 20180509
  Serious: Yes (Other)
  Sender: FDA-Public Use
  Company Number: JP-TOLMAR, INC.-TOLG20180130

PATIENT
  Age: 61 Year
  Sex: Female

DRUGS (1)
  1. METRONIDAZOLE. [Suspect]
     Active Substance: METRONIDAZOLE
     Indication: BRAIN ABSCESS
     Dosage: 2 G
     Route: 065

REACTIONS (5)
  - Loss of consciousness [Recovering/Resolving]
  - Encephalopathy [Recovering/Resolving]
  - Gait disturbance [Recovering/Resolving]
  - Ataxia [Recovering/Resolving]
  - Hypotonia [Recovering/Resolving]
